FAERS Safety Report 8028571-7 (Version None)
Quarter: 2012Q1

REPORT INFORMATION
  Report Type: 
  Country: None (occurrence: None)
  Receive Date: 20120106
  Receipt Date: 20111223
  Transmission Date: 20120608
  Serious: Yes (Hospitalization)
  Sender: FDA-Public Use
  Company Number: DE-US-EMD SERONO, INC.-7097282

PATIENT
  Sex: Male
  Weight: 35 kg

DRUGS (3)
  1. SAIZEN [Suspect]
     Indication: GROWTH RETARDATION
     Route: 058
  2. SAIZEN [Suspect]
     Route: 058
     Dates: start: 20051215, end: 20110517
  3. SAIZEN [Suspect]
     Route: 058
     Dates: start: 20110701

REACTIONS (1)
  - SURGERY [None]
